FAERS Safety Report 23978586 (Version 1)
Quarter: 2024Q2

REPORT INFORMATION
  Report Type: Spontaneous
  Country: GB (occurrence: IT)
  Receive Date: 20240614
  Receipt Date: 20240614
  Transmission Date: 20240716
  Serious: Yes (Hospitalization)
  Sender: FDA-Public Use
  Company Number: IT-CNX THERAPEUTICS-2024CNX000382

PATIENT

DRUGS (2)
  1. LATUDA [Suspect]
     Active Substance: LURASIDONE HYDROCHLORIDE
     Indication: Schizophrenia
     Dosage: 75 MG
     Route: 048
  2. VALPROATE SODIUM [Suspect]
     Active Substance: VALPROATE SODIUM
     Indication: Bipolar disorder
     Dosage: 300 MG
     Route: 048

REACTIONS (2)
  - Intrusive thoughts [Recovering/Resolving]
  - Anxiety [Recovering/Resolving]

NARRATIVE: CASE EVENT DATE: 20240221
